FAERS Safety Report 21710500 (Version 2)
Quarter: 2022Q4

REPORT INFORMATION
  Report Type: Spontaneous
  Country: US (occurrence: US)
  Receive Date: 20221212
  Receipt Date: 20221216
  Transmission Date: 20230113
  Serious: No
  Sender: FDA-Public Use
  Company Number: US-BIOVITRUM-2022US12796

PATIENT
  Age: 25 Year
  Sex: Female

DRUGS (1)
  1. KINERET [Suspect]
     Active Substance: ANAKINRA
     Indication: Still^s disease
     Dates: start: 20221012

REACTIONS (8)
  - Swelling face [Unknown]
  - Feeling hot [Unknown]
  - Dysphonia [Unknown]
  - Muscle spasms [Unknown]
  - Acne [Unknown]
  - Rash [Recovered/Resolved]
  - Hypersensitivity [Unknown]
  - Off label use [Unknown]

NARRATIVE: CASE EVENT DATE: 20221012
